FAERS Safety Report 4351012-8 (Version None)
Quarter: 2004Q2

REPORT INFORMATION
  Report Type: 
  Country: None (occurrence: None)
  Receive Date: 20040427
  Receipt Date: 20040414
  Transmission Date: 20050107
  Serious: Yes (Other)
  Sender: FDA-Public Use
  Company Number: 2004015139

PATIENT
  Sex: Female

DRUGS (4)
  1. PHENYTOIN SODIUM [Suspect]
     Indication: EPILEPSY
     Dosage: 400 MG (DAILY), ORAL
     Route: 048
     Dates: start: 19900101
  2. FOLIC ACID [Concomitant]
  3. CEFRADINE (CEFRADINE) [Concomitant]
  4. HEPARIN [Concomitant]

REACTIONS (5)
  - CONVULSION [None]
  - DRUG EXPOSURE DURING PREGNANCY [None]
  - DRUG LEVEL DECREASED [None]
  - PREGNANCY [None]
  - PRURITUS [None]
